FAERS Safety Report 11410988 (Version 1)
Quarter: 2015Q3

REPORT INFORMATION
  Report Type: Spontaneous
  Country: US (occurrence: US)
  Receive Date: 20150821
  Receipt Date: 20150821
  Transmission Date: 20151125
  Serious: No
  Sender: FDA-Public Use
  Company Number: US-ELI_LILLY_AND_COMPANY-US201002004767

PATIENT
  Sex: Female

DRUGS (3)
  1. HUMULIN 70/30 [Suspect]
     Active Substance: INSULIN HUMAN
     Indication: DIABETES MELLITUS
     Dosage: 30 U, EACH MORNING
     Dates: start: 201001
  2. HUMULIN 70/30 [Suspect]
     Active Substance: INSULIN HUMAN
     Dosage: 8 U, EACH EVENING
     Dates: start: 201001
  3. NOVOLIN [Concomitant]
     Active Substance: INSULIN HUMAN

REACTIONS (4)
  - Hypoaesthesia [Unknown]
  - Dizziness [Unknown]
  - Drug prescribing error [Unknown]
  - Chest pain [Unknown]

NARRATIVE: CASE EVENT DATE: 201001
